FAERS Safety Report 8170153-0 (Version None)
Quarter: 2012Q1

REPORT INFORMATION
  Report Type: 
  Country: None (occurrence: None)
  Receive Date: 20120228
  Receipt Date: 20120221
  Transmission Date: 20120608
  Serious: Yes (Hospitalization)
  Sender: FDA-Public Use
  Company Number: PHHY2012CO015409

PATIENT
  Age: 73 Year
  Sex: Female

DRUGS (1)
  1. ZOLEDRONOC ACID [Suspect]
     Indication: OSTEOPOROSIS
     Dosage: 5 MG/100 ML/YEAR
     Route: 042
     Dates: start: 20120204

REACTIONS (3)
  - DIVERTICULITIS [None]
  - HAEMORRHAGE [None]
  - COAGULOPATHY [None]
